FAERS Safety Report 13902896 (Version 3)
Quarter: 2017Q4

REPORT INFORMATION
  Report Type: Report from Study
  Country: CZ (occurrence: CZ)
  Receive Date: 20170824
  Receipt Date: 20171010
  Transmission Date: 20180320
  Serious: Yes (Hospitalization)
  Sender: FDA-Public Use
  Company Number: CZ-UCBSA-2017027991

PATIENT
  Age: 43 Year
  Sex: Female
  Weight: 73 kg

DRUGS (11)
  1. VIGANTOL [Concomitant]
     Active Substance: CHOLECALCIFEROL
     Indication: OSTEOPOROSIS
     Dosage: 10 GTT, ONCE DAILY (QD)
     Route: 048
     Dates: start: 2008
  2. NOLPAZA [Concomitant]
     Active Substance: PANTOPRAZOLE SODIUM
     Indication: GASTRIC DISORDER
     Dosage: 40 MG, AS NEEDED (PRN)
     Route: 048
     Dates: start: 2008
  3. SUMATRIPTAN. [Concomitant]
     Active Substance: SUMATRIPTAN
     Indication: MIGRAINE
     Dosage: 50 MG, AS NEEDED (PRN)
     Route: 048
     Dates: start: 1991
  4. METHOTREXATE. [Concomitant]
     Active Substance: METHOTREXATE
     Dosage: 10 MG, WEEKLY (QW)
     Route: 048
     Dates: start: 20170711
  5. MEDROL [Concomitant]
     Active Substance: METHYLPREDNISOLONE
     Indication: AXIAL SPONDYLOARTHRITIS
     Dosage: 2 MG, ONCE DAILY (QD)
     Route: 048
     Dates: start: 2008
  6. AMPRILAN [Concomitant]
     Active Substance: RAMIPRIL
     Indication: HYPERTENSION
     Dosage: 2.5 MG, ONCE DAILY (QD)
     Route: 048
     Dates: start: 201601
  7. CERTOLIZUMAB PEGOL [Suspect]
     Active Substance: CERTOLIZUMAB PEGOL
     Indication: AXIAL SPONDYLOARTHRITIS
     Dosage: UNK
     Dates: start: 20161230, end: 20170824
  8. METHOTREXATE. [Concomitant]
     Active Substance: METHOTREXATE
     Indication: AXIAL SPONDYLOARTHRITIS
     Dosage: 7.5 MG, WEEKLY (QW)
     Route: 048
     Dates: start: 2008, end: 20170710
  9. ACIDUM FOLICUM [Concomitant]
     Active Substance: FOLIC ACID
     Indication: ANAEMIA
     Dosage: 10 MG, UNK
     Route: 048
     Dates: start: 2008
  10. DICLOFENAC DUO [Concomitant]
     Active Substance: DICLOFENAC SODIUM
     Indication: AXIAL SPONDYLOARTHRITIS
     Dosage: 75 MG, ONCE DAILY (QD)
     Route: 048
     Dates: start: 2008
  11. ALGIFEN NEO [Concomitant]
     Indication: AXIAL SPONDYLOARTHRITIS
     Dosage: 15 GTT, AS NEEDED (PRN)
     Route: 048
     Dates: start: 2008

REACTIONS (1)
  - Neuroborreliosis [Recovered/Resolved]

NARRATIVE: CASE EVENT DATE: 20170626
